FAERS Safety Report 4357411-2 (Version None)
Quarter: 2004Q2

REPORT INFORMATION
  Report Type: 
  Country: None (occurrence: None)
  Receive Date: 20040510
  Receipt Date: 20040310
  Transmission Date: 20050107
  Serious: Yes (Hospitalization, Congenital Anomaly)
  Sender: FDA-Public Use
  Company Number: 2004CG00506

PATIENT
  Age: 29 Year
  Sex: Female

DRUGS (9)
  1. AVLOCARDYL [Suspect]
  2. ZOMIG [Suspect]
     Indication: MIGRAINE
  3. TAREG [Suspect]
     Indication: HYPERTENSION
     Dosage: 2 DF DAILY PO
     Route: 048
     Dates: start: 20030315, end: 20040114
  4. NEORECORMON ^ROCHE^ [Suspect]
  5. BURINEX [Suspect]
  6. PROGRAF [Suspect]
  7. ATARAX [Suspect]
  8. ACETAMINOPHEN [Suspect]
  9. SPECIAFOLDINE [Suspect]
     Indication: HYPERHOMOCYSTEINAEMIA
     Dates: start: 20030601

REACTIONS (15)
  - ABORTION INDUCED [None]
  - ANTIPHOSPHOLIPID ANTIBODIES POSITIVE [None]
  - AUTOANTIBODY POSITIVE [None]
  - COMPLICATIONS OF MATERNAL EXPOSURE TO THERAPEUTIC DRUGS [None]
  - EMBOLISM [None]
  - FOETAL GROWTH RETARDATION [None]
  - FOETAL MOVEMENTS DECREASED [None]
  - GASTROINTESTINAL DISORDER [None]
  - HYPERTENSION [None]
  - MATERNAL DRUGS AFFECTING FOETUS [None]
  - OLIGOHYDRAMNIOS [None]
  - PLACENTAL DISORDER [None]
  - RENAL DISORDER [None]
  - RENAL FAILURE [None]
  - ULTRASOUND ANTENATAL SCREEN ABNORMAL [None]
